FAERS Safety Report 18870127 (Version 3)
Quarter: 2021Q1

REPORT INFORMATION
  Report Type: Report from Study
  Country: US (occurrence: US)
  Receive Date: 20210210
  Receipt Date: 20210225
  Transmission Date: 20210420
  Serious: Yes (Other)
  Sender: FDA-Public Use
  Company Number: NVSC2021US026097

PATIENT
  Age: 55 Year
  Sex: Female

DRUGS (4)
  1. LOMOTIL [Concomitant]
     Active Substance: ATROPINE SULFATE\DIPHENOXYLATE HYDROCHLORIDE
     Indication: PRODUCT USED FOR UNKNOWN INDICATION
     Dosage: 3 DF
     Route: 065
  2. PIQRAY [Suspect]
     Active Substance: ALPELISIB
     Indication: BREAST CANCER METASTATIC
     Dosage: UNK UNK, QD (TABLET)
     Route: 048
  3. METFORMIN [Concomitant]
     Active Substance: METFORMIN HYDROCHLORIDE
     Indication: DIABETES MELLITUS
     Dosage: UNK
     Route: 065
  4. IMODIUM [Concomitant]
     Active Substance: LOPERAMIDE HYDROCHLORIDE
     Indication: PRODUCT USED FOR UNKNOWN INDICATION
     Dosage: UNK (6?8 DF)
     Route: 065

REACTIONS (7)
  - Malignant neoplasm progression [Unknown]
  - Blood glucose increased [Recovering/Resolving]
  - Rash [Recovering/Resolving]
  - Diarrhoea [Recovering/Resolving]
  - Fatigue [Unknown]
  - Breast cancer metastatic [Unknown]
  - Weight decreased [Recovering/Resolving]
